FAERS Safety Report 7617738-5 (Version None)
Quarter: 2011Q3

REPORT INFORMATION
  Report Type: 
  Country: None (occurrence: None)
  Receive Date: 20110718
  Receipt Date: 20110712
  Transmission Date: 20111222
  Serious: Yes (Disabling)
  Sender: FDA-Public Use
  Company Number: GB-PERRIGO-11GB005587

PATIENT
  Age: 44 Year
  Sex: Female
  Weight: 65 kg

DRUGS (5)
  1. CHONDROITIN [Concomitant]
     Indication: PRODUCT USED FOR UNKNOWN INDICATION
     Dosage: UNK
     Route: 065
  2. GLUCOSAMINE [Concomitant]
     Indication: PRODUCT USED FOR UNKNOWN INDICATION
     Dosage: UNK
     Route: 065
  3. VITAMIN B COMPLEX CAP [Concomitant]
     Indication: PRODUCT USED FOR UNKNOWN INDICATION
     Dosage: UNK
     Route: 065
  4. CALCIUM CARBONATE [Concomitant]
     Indication: PRODUCT USED FOR UNKNOWN INDICATION
     Dosage: UNK
     Route: 065
  5. MINOXIDIL [Suspect]
     Indication: ALOPECIA
     Dosage: 2%
     Route: 061
     Dates: start: 20080601, end: 20101101

REACTIONS (10)
  - OEDEMA PERIPHERAL [None]
  - TACHYCARDIA [None]
  - ANXIETY [None]
  - DEPRESSION [None]
  - ARTHROPATHY [None]
  - DEPRESSED MOOD [None]
  - INSOMNIA [None]
  - BONE PAIN [None]
  - NAUSEA [None]
  - ACROCHORDON [None]
